FAERS Safety Report 12914115 (Version 1)
Quarter: 2016Q4

REPORT INFORMATION
  Report Type: Spontaneous
  Country: US (occurrence: US)
  Receive Date: 20161105
  Receipt Date: 20161105
  Transmission Date: 20170207
  Serious: Yes (Disabling)
  Sender: FDA-Public Use
  Company Number: US-AMGEN-USASP2016141016

PATIENT
  Age: 59 Year
  Sex: Male
  Weight: 104.31 kg

DRUGS (8)
  1. TESTOSTERONE. [Concomitant]
     Active Substance: TESTOSTERONE
  2. ASPIRIN. [Concomitant]
     Active Substance: ASPIRIN
  3. MULTI VITAMIN AND MINERAL + SELENIUM [Concomitant]
  4. VITAMIN D [Concomitant]
     Active Substance: CHOLECALCIFEROL
  5. FINASTERIDE. [Concomitant]
     Active Substance: FINASTERIDE
     Dosage: 1 MG, QD
  6. VITAMIN C [Concomitant]
     Active Substance: ASCORBIC ACID
  7. CURCUMIN [Concomitant]
     Active Substance: CURCUMIN
  8. REPATHA [Suspect]
     Active Substance: EVOLOCUMAB
     Indication: BLOOD CHOLESTEROL INCREASED
     Dosage: 140 MG, Q2WK
     Route: 065
     Dates: start: 20160520, end: 20160621

REACTIONS (2)
  - Areflexia [Recovered/Resolved]
  - Muscle fatigue [Recovered/Resolved]

NARRATIVE: CASE EVENT DATE: 201606
